FAERS Safety Report 15613371 (Version 2)
Quarter: 2018Q4

REPORT INFORMATION
  Report Type: Spontaneous
  Country: BR (occurrence: BR)
  Receive Date: 20181113
  Receipt Date: 20181120
  Transmission Date: 20190205
  Serious: Yes (Hospitalization, Other)
  Sender: FDA-Public Use
  Company Number: BR-PFIZER INC-2018460766

PATIENT
  Age: 67 Year
  Sex: Female

DRUGS (2)
  1. FRONTAL [Suspect]
     Active Substance: ALPRAZOLAM
     Dosage: ONE OR TWO TABLETS PER DAY, DEPENDING ON HOW SHE IS (MEDICAL INDICATION)
  2. FRONTAL [Suspect]
     Active Substance: ALPRAZOLAM
     Indication: ANXIETY
     Dosage: HALF OR ONE TABLET PER DAY, DEPENDING ON HOW SHE IS (MEDICAL INDICATION)
     Dates: end: 2017

REACTIONS (4)
  - Drug ineffective [Not Recovered/Not Resolved]
  - Breast cancer [Recovered/Resolved]
  - Drug dependence [Not Recovered/Not Resolved]
  - Spinal fracture [Recovered/Resolved]

NARRATIVE: CASE EVENT DATE: 2006
